FAERS Safety Report 19417390 (Version 1)
Quarter: 2021Q2

REPORT INFORMATION
  Report Type: Spontaneous
  Country: US (occurrence: US)
  Receive Date: 20210615
  Receipt Date: 20210615
  Transmission Date: 20210717
  Serious: Yes (Life-Threatening)
  Sender: FDA-Public Use
  Company Number: None

PATIENT
  Age: 27 Year
  Sex: Male
  Weight: 68.85 kg

DRUGS (1)
  1. SUBOXONE [Suspect]
     Active Substance: BUPRENORPHINE HYDROCHLORIDE\NALOXONE HYDROCHLORIDE
     Indication: DRUG DEPENDENCE
     Route: 002

REACTIONS (6)
  - Drug withdrawal syndrome [None]
  - Depressed level of consciousness [None]
  - Cold sweat [None]
  - Pain [None]
  - Headache [None]
  - Heat stroke [None]

NARRATIVE: CASE EVENT DATE: 20110611
